FAERS Safety Report 9271162 (Version 1)
Quarter: 2013Q2

REPORT INFORMATION
  Report Type: Spontaneous
  Country: NL (occurrence: NL)
  Receive Date: 20130506
  Receipt Date: 20130506
  Transmission Date: 20140414
  Serious: Yes (Death)
  Sender: FDA-Public Use
  Company Number: PHHY2013NL043885

PATIENT
  Age: 52 Year
  Sex: Male

DRUGS (2)
  1. STALEVO [Suspect]
     Indication: PARKINSON^S DISEASE
     Dosage: 4 DF, QD (200/150/37.5 MG)
     Route: 048
     Dates: start: 201007
  2. REQUIP-MODUTAB [Interacting]
     Indication: PARKINSON^S DISEASE
     Dosage: 2 DF, QD (16 MG)
     Dates: start: 200908

REACTIONS (2)
  - Completed suicide [Fatal]
  - Drug interaction [Fatal]
